FAERS Safety Report 10633191 (Version 1)
Quarter: 2014Q4

REPORT INFORMATION
  Report Type: Spontaneous
  Country: US (occurrence: US)
  Receive Date: 20141205
  Receipt Date: 20141205
  Transmission Date: 20150529
  Serious: No
  Sender: FDA-Public Use
  Company Number: US-BRISTOL-MYERS SQUIBB COMPANY-21567144

PATIENT
  Age: 57 Year
  Sex: Male
  Weight: 72.56 kg

DRUGS (1)
  1. ORENCIA [Suspect]
     Active Substance: ABATACEPT
     Indication: PSORIATIC ARTHROPATHY
     Dosage: LAST DOSE WAS ON 27OCT2014
     Route: 058
     Dates: end: 20141027

REACTIONS (2)
  - Off label use [Unknown]
  - Drug dose omission [Unknown]
